FAERS Safety Report 8622608-X (Version None)
Quarter: 2012Q3

REPORT INFORMATION
  Report Type: 
  Country: None (occurrence: None)
  Receive Date: 20120827
  Receipt Date: 20120816
  Transmission Date: 20120928
  Serious: Yes (Other)
  Sender: FDA-Public Use
  Company Number: JP-JNJFOC-20110807845

PATIENT
  Sex: Female

DRUGS (33)
  1. FENTANYL-100 [Suspect]
     Route: 062
     Dates: start: 20110323, end: 20110330
  2. CODEINE PHOSPHATE [Concomitant]
     Route: 048
     Dates: start: 20110323, end: 20110329
  3. CODEINE PHOSPHATE [Concomitant]
     Route: 048
  4. ATARAX [Concomitant]
     Route: 048
     Dates: start: 20110408, end: 20110414
  5. TRAMADOL HCL [Concomitant]
     Dosage: AS NECESSARY
     Route: 048
     Dates: start: 20110802, end: 20111110
  6. FENTANYL-100 [Suspect]
     Indication: PAIN
     Route: 062
     Dates: start: 20111111, end: 20111205
  7. FENTANYL-100 [Suspect]
     Route: 062
     Dates: start: 20110629, end: 20110801
  8. FENTANYL-100 [Suspect]
     Route: 062
     Dates: start: 20110406, end: 20110420
  9. CODEINE PHOSPHATE [Concomitant]
     Route: 048
     Dates: start: 20110413, end: 20110419
  10. TRAMADOL HCL [Concomitant]
     Dosage: AS NECESSARY
     Route: 048
     Dates: start: 20111111, end: 20111205
  11. FENTANYL-100 [Suspect]
     Route: 062
     Dates: start: 20110802, end: 20111110
  12. CODEINE PHOSPHATE [Concomitant]
     Route: 048
     Dates: start: 20110330, end: 20110405
  13. CODEINE PHOSPHATE [Concomitant]
     Route: 048
     Dates: start: 20110616, end: 20110622
  14. ROPIVACAINE HYDROCHLORIDE [Concomitant]
     Indication: PAIN
     Route: 065
  15. ATARAX [Concomitant]
     Route: 048
     Dates: start: 20110415, end: 20111219
  16. FERROUS CITRATE [Concomitant]
     Dosage: AS NECESSARY
     Route: 048
     Dates: start: 20110527, end: 20110624
  17. ACETAMINOPHEN [Concomitant]
     Indication: PAIN
     Dosage: AS NECESSARY
     Route: 048
     Dates: start: 20110427
  18. CODEINE PHOSPHATE [Concomitant]
     Route: 048
     Dates: start: 20110420
  19. CODEINE PHOSPHATE [Concomitant]
     Route: 048
  20. PROCHLORPERAZINE [Concomitant]
     Indication: PROPHYLAXIS
     Route: 048
     Dates: start: 20110323, end: 20110405
  21. PURSENNID [Concomitant]
     Dosage: AS NECESSARY
     Route: 048
     Dates: start: 20110406, end: 20110505
  22. HALCION [Concomitant]
     Dosage: AS NECESSARY
     Route: 048
     Dates: start: 20110506, end: 20111108
  23. MAGMITT [Concomitant]
     Indication: PROPHYLAXIS
     Route: 048
     Dates: start: 20110323
  24. LAXOBERON [Concomitant]
     Dosage: AS NECESSARY (0.8-1.0 ML)
     Route: 048
     Dates: start: 20110408, end: 20110505
  25. PROCHLORPERAZINE [Concomitant]
     Indication: PAIN
     Dosage: AS NECESSARY
     Route: 048
     Dates: start: 20110511, end: 20110801
  26. FENTANYL-100 [Suspect]
     Route: 062
     Dates: start: 20110420, end: 20110628
  27. FENTANYL-100 [Suspect]
     Route: 062
     Dates: start: 20110330, end: 20110406
  28. CODEINE PHOSPHATE [Concomitant]
     Route: 048
     Dates: start: 20110406, end: 20110412
  29. ALOSENN [Concomitant]
     Dosage: AS NECESSARY
     Route: 048
     Dates: start: 20110506, end: 20110628
  30. PRIMPERAN TAB [Concomitant]
     Dosage: AS NECESSARY
     Route: 048
     Dates: start: 20110802, end: 20111219
  31. CELEBREX [Concomitant]
     Indication: PAIN
     Route: 048
     Dates: end: 20110801
  32. LANSOPRAZOLE [Concomitant]
     Dosage: AS NECESSARY
     Route: 048
  33. TRAMADOL HCL [Concomitant]
     Indication: PAIN
     Dosage: AS NECESSARY
     Route: 048
     Dates: start: 20111206

REACTIONS (6)
  - SOMNOLENCE [None]
  - PRURITUS [None]
  - INSOMNIA [None]
  - ANAEMIA [None]
  - CONSTIPATION [None]
  - NAUSEA [None]
